FAERS Safety Report 7516058-7 (Version None)
Quarter: 2011Q2

REPORT INFORMATION
  Report Type: 
  Country: None (occurrence: None)
  Receive Date: 20110601
  Receipt Date: 20110519
  Transmission Date: 20111010
  Serious: Yes (Other)
  Sender: FDA-Public Use
  Company Number: RU-SOLVAY-00311004111

PATIENT
  Age: 40 Year
  Sex: Female

DRUGS (1)
  1. PROGESTERONE [Suspect]
     Indication: DRUG EXPOSURE DURING PREGNANCY
     Dosage: DAILY DOSE:  UNKNOWN
     Route: 065
     Dates: start: 20100101, end: 20101201

REACTIONS (2)
  - ABORTION SPONTANEOUS [None]
  - PROGESTERONE DECREASED [None]
